FAERS Safety Report 10554357 (Version 3)
Quarter: 2015Q1

REPORT INFORMATION
  Report Type: Spontaneous
  Country: GB (occurrence: GB)
  Receive Date: 20141030
  Receipt Date: 20150105
  Transmission Date: 20150720
  Serious: Yes (Other)
  Sender: FDA-Public Use
  Company Number: GB-ASTELLAS-2014US015980

PATIENT
  Age: 67 Year
  Sex: Female

DRUGS (10)
  1. ESTRADIOL. [Concomitant]
     Active Substance: ESTRADIOL
     Indication: PRODUCT USED FOR UNKNOWN INDICATION
     Route: 065
     Dates: start: 20141113
  2. DILZEM [Concomitant]
     Active Substance: DILTIAZEM
     Indication: PRODUCT USED FOR UNKNOWN INDICATION
     Dosage: UNK (120),UNK, ONCE DAILY,28 CAPSULES
     Route: 065
     Dates: start: 20141113
  3. DIGOXIN. [Concomitant]
     Active Substance: DIGOXIN
     Indication: PRODUCT USED FOR UNKNOWN INDICATION
     Route: 065
     Dates: start: 20141113
  4. ROSUVASTATIN [Concomitant]
     Active Substance: ROSUVASTATIN
     Indication: PRODUCT USED FOR UNKNOWN INDICATION
     Dosage: 5 MG, ONCE DAILY,28 TABLETS
     Route: 065
     Dates: start: 20140707
  5. MIRABEGRON [Concomitant]
     Active Substance: MIRABEGRON
     Indication: PRODUCT USED FOR UNKNOWN INDICATION
     Dosage: 50 MG, ONCE DAILY,30 TABLETS
     Route: 065
     Dates: start: 20141107
  6. VESICARE [Suspect]
     Active Substance: SOLIFENACIN SUCCINATE
     Indication: MICTURITION URGENCY
     Dosage: 5 MG, UNKNOWN FREQ., FOR 3 WEEKS
     Route: 048
     Dates: start: 201410, end: 20141025
  7. WARFARIN [Concomitant]
     Active Substance: WARFARIN
     Dosage: 5 MG TABLETS, TAKE ONE AS DIRECTED,56 TABLET
     Route: 065
     Dates: start: 20140909
  8. DILZEM [Concomitant]
     Active Substance: DILTIAZEM
     Dosage: UNK, ONCE DAILY
     Route: 065
     Dates: start: 20141113
  9. VESICARE [Suspect]
     Active Substance: SOLIFENACIN SUCCINATE
     Dosage: UNK UNK, UNKNOWN FREQ.
     Route: 065
     Dates: start: 2012
  10. WARFARIN [Concomitant]
     Active Substance: WARFARIN
     Indication: PRODUCT USED FOR UNKNOWN INDICATION
     Dosage: UNK UNK, UNKNOWN FREQ,1 MG TABLETS, TAKE AS DIRECTED AS PER THE BLOOD RESULT FOR AF,84 TABLETS
     Route: 065
     Dates: start: 20140909

REACTIONS (5)
  - Palpitations [Recovered/Resolved]
  - Dizziness [Recovered/Resolved]
  - Nausea [Recovered/Resolved]
  - Eye swelling [Unknown]
  - Oedema peripheral [Unknown]

NARRATIVE: CASE EVENT DATE: 20141024
